FAERS Safety Report 21697594 (Version 1)
Quarter: 2022Q4

REPORT INFORMATION
  Report Type: Other
  Country: GB (occurrence: GB)
  Receive Date: 20221208
  Receipt Date: 20221208
  Transmission Date: 20230112
  Serious: Yes (Other)
  Sender: FDA-Public Use
  Company Number: None

PATIENT
  Age: 63 Year
  Sex: Male

DRUGS (33)
  1. FLUOXETINE [Suspect]
     Active Substance: FLUOXETINE HYDROCHLORIDE
     Indication: Product used for unknown indication
     Dosage: UNK; (??-SEP-2015 00:00)
     Route: 065
     Dates: start: 201509
  2. OLANZAPINE [Suspect]
     Active Substance: OLANZAPINE
     Indication: Mania
     Dosage: 5 MILLIGRAM
     Route: 065
     Dates: start: 201307
  3. OLANZAPINE [Suspect]
     Active Substance: OLANZAPINE
     Dosage: 10 MILLIGRAM; DEPRESSED AND ANXIOUS.; (??-JUN-2014 00:00)
     Route: 065
     Dates: start: 201311
  4. OLANZAPINE [Suspect]
     Active Substance: OLANZAPINE
     Dosage: 10 MILLIGRAM; DEPRESSED AND ANXIOUS; (??-AUG-2014 00:00)
     Route: 065
     Dates: start: 201407
  5. OLANZAPINE [Suspect]
     Active Substance: OLANZAPINE
     Dosage: 15 MILLIGRAM PER DAY; ALONG WITH PAROXETINE (??-JUL-2014 00:00)
     Route: 065
  6. OLANZAPINE [Suspect]
     Active Substance: OLANZAPINE
     Dosage: UNK; DEPRESSED AND ANXIOUS; (??-NOV-2014 00:00)
     Route: 065
  7. OLANZAPINE [Suspect]
     Active Substance: OLANZAPINE
     Dosage: 10 MILLIGRAM; DEPRESSED AND ANXIOUS;
     Route: 065
     Dates: start: 201409
  8. OLANZAPINE [Suspect]
     Active Substance: OLANZAPINE
     Dosage: 7.5 MILLIGRAM; DEPRESSED AND ANXIOUS;
     Route: 065
     Dates: start: 201410
  9. LOFEPRAMINE [Suspect]
     Active Substance: LOFEPRAMINE
     Indication: Product used for unknown indication
     Dosage: 70 MILLIGRAM; (DEPRESSED AND ANXIOUS) (??-NOV-2014 00:00)
     Route: 065
     Dates: start: 201411
  10. PREGABALIN [Suspect]
     Active Substance: PREGABALIN
     Indication: Product used for unknown indication
     Dosage: UNK
     Route: 065
     Dates: start: 201410
  11. PREGABALIN [Suspect]
     Active Substance: PREGABALIN
     Dosage: 150 MILLIGRAM; TIME INTERVAL: 0.33 D (??-FEB-2015 00:00)
     Route: 065
     Dates: start: 201501
  12. PREGABALIN [Suspect]
     Active Substance: PREGABALIN
     Dosage: 150 MILLIGRAM; DEPRESSED AND ANXIOUS; TIME INTERVAL: 0.33 D (??-JUN-2015 00:00)
     Route: 065
     Dates: start: 201503
  13. PREGABALIN [Suspect]
     Active Substance: PREGABALIN
     Dosage: 150 MILLIGRAM;DEPRESSED AND ANXIOUS; TIME INTERVAL: 0.33 D
     Route: 065
     Dates: start: 201506
  14. PREGABALIN [Suspect]
     Active Substance: PREGABALIN
     Dosage: 150 MILLIGRAM; TIME INTERVAL: 0.33 D
     Route: 065
     Dates: start: 201509
  15. PREGABALIN [Suspect]
     Active Substance: PREGABALIN
     Dosage: 150 MILLIGRAM; DEPRESSED AND ANXIOUS; TIME INTERVAL: 0.33 D
     Route: 065
     Dates: start: 201511
  16. PREGABALIN [Suspect]
     Active Substance: PREGABALIN
     Dosage: 150 MILLIGRAM; DEPRESSED AND ANXIOUS; TIME INTERVAL: 0.33 D
     Route: 065
     Dates: start: 201601
  17. SERTRALINE [Suspect]
     Active Substance: SERTRALINE HYDROCHLORIDE
     Indication: Product used for unknown indication
     Dosage: 200 MILLIGRAM PER DAY; (??-AUG-2014 00:00)
     Route: 065
     Dates: start: 201407
  18. VENLAFAXINE [Suspect]
     Active Substance: VENLAFAXINE HYDROCHLORIDE
     Indication: Product used for unknown indication
     Dosage: 75 MILLIGRAM, BID
     Route: 065
     Dates: start: 201409
  19. DIAZEPAM [Concomitant]
     Active Substance: DIAZEPAM
     Indication: Anxiety
     Dosage: 5 MILLIGRAM, PRN
     Route: 048
     Dates: start: 201411
  20. DIAZEPAM [Concomitant]
     Active Substance: DIAZEPAM
     Dosage: 5 MILLIGRAM PER DAY; DEPRESSED AND ANXIOUS (??-FEB-2015 00:00)
     Route: 065
     Dates: start: 201501
  21. DIAZEPAM [Concomitant]
     Active Substance: DIAZEPAM
     Dosage: 5 MILLIGRAM PER DAY; DEPRESSED AND ANXIOUS (??-JUN-2015 00:00)
     Route: 065
     Dates: start: 201503
  22. DIAZEPAM [Concomitant]
     Active Substance: DIAZEPAM
     Dosage: 5 MILLIGRAM PER DAY; DEPRESSED AND ANXIOUS
     Route: 065
     Dates: start: 201506
  23. DIAZEPAM [Concomitant]
     Active Substance: DIAZEPAM
     Dosage: 5 MILLIGRAM PER DAY ; DEPRESSED AND ANXIOUS
     Route: 065
     Dates: start: 201509
  24. DIAZEPAM [Concomitant]
     Active Substance: DIAZEPAM
     Dosage: 5 MILLIGRAM PER DAY; DEPRESSED AND ANXIOUS
     Route: 065
     Dates: start: 201511
  25. DIAZEPAM [Concomitant]
     Active Substance: DIAZEPAM
     Dosage: 5 MILLIGRAM PER DAY; DEPRESSED AND ANXIOUS.  STOPPED BY THE PATIENT HIMSELF (IMPROVEMENT IN ANXIETY)
     Route: 065
     Dates: start: 201601
  26. LAMOTRIGINE [Concomitant]
     Active Substance: LAMOTRIGINE
     Indication: Product used for unknown indication
     Dosage: UNK; (??-NOV-2015 00:00)
     Route: 065
     Dates: start: 201511
  27. MIRTAZAPINE [Concomitant]
     Active Substance: MIRTAZAPINE
     Indication: Product used for unknown indication
     Dosage: UNK
     Route: 065
  28. MIRTAZAPINE [Concomitant]
     Active Substance: MIRTAZAPINE
     Dosage: 30 MILLIGRAM
     Route: 065
     Dates: start: 201503
  29. MIRTAZAPINE [Concomitant]
     Active Substance: MIRTAZAPINE
     Dosage: 45 MILLIGRAM PER DAY; TITRATED TO 45 MG
     Route: 065
     Dates: start: 201704
  30. QUETIAPINE [Concomitant]
     Active Substance: QUETIAPINE
     Indication: Product used for unknown indication
     Dosage: 100 MILLIGRAM, BID (DEPRESSED AND ANXIOUS) (??-FEB-2015 00:00)
     Route: 065
     Dates: start: 201501
  31. QUETIAPINE [Concomitant]
     Active Substance: QUETIAPINE
     Dosage: 100 MILLIGRAM, BID (DEPRESSED AND ANXIOUS) (??-JUN-2015 00:00)
     Route: 065
     Dates: start: 201503
  32. PAROXETINE [Concomitant]
     Active Substance: PAROXETINE
     Indication: Bipolar disorder
     Dosage: 50 MILLIGRAM; DOSE WAS INCREASED
     Route: 065
  33. ARIPIPRAZOLE [Concomitant]
     Active Substance: ARIPIPRAZOLE
     Indication: Product used for unknown indication
     Dosage: 5 MILLIGRAM PER DAY
     Route: 065

REACTIONS (3)
  - Inappropriate antidiuretic hormone secretion [Not Recovered/Not Resolved]
  - Hyponatraemia [Not Recovered/Not Resolved]
  - Drug ineffective [Unknown]
